FAERS Safety Report 11173435 (Version 1)
Quarter: 2015Q2

REPORT INFORMATION
  Report Type: Spontaneous
  Country: TR (occurrence: TR)
  Receive Date: 20150609
  Receipt Date: 20150609
  Transmission Date: 20150821
  Serious: Yes (Hospitalization, Other)
  Sender: FDA-Public Use
  Company Number: TR-SUN PHARMACEUTICAL INDUSTRIES LTD-2015RR-97383

PATIENT

DRUGS (1)
  1. ASPIRIN. [Suspect]
     Active Substance: ASPIRIN
     Indication: ARTHRALGIA
     Dosage: APPLYED MIXTURE OF WHITE VINEGAR AND 5 TABLEST OF ASPIRIN
     Route: 061

REACTIONS (3)
  - Drug administration error [Unknown]
  - Chemical injury [Recovered/Resolved]
  - Self-medication [Unknown]
